FAERS Safety Report 6180393-8 (Version None)
Quarter: 2009Q2

REPORT INFORMATION
  Report Type: 
  Country: None (occurrence: None)
  Receive Date: 20090506
  Receipt Date: 20090424
  Transmission Date: 20091009
  Serious: Yes (Hospitalization)
  Sender: FDA-Public Use
  Company Number: GR-PFIZER INC-2009203405

PATIENT

DRUGS (1)
  1. MINOXIDIL [Suspect]
     Indication: ALOPECIA AREATA
     Dosage: 1 ML, 2X/DAY
     Route: 061

REACTIONS (1)
  - TACHYCARDIA [None]
